FAERS Safety Report 6286261-5 (Version None)
Quarter: 2009Q3

REPORT INFORMATION
  Report Type: 
  Country: None (occurrence: None)
  Receive Date: 20090728
  Receipt Date: 20090716
  Transmission Date: 20100115
  Serious: Yes (Life-Threatening, Hospitalization)
  Sender: FDA-Public Use
  Company Number: BE-PFIZER INC-2009241089

PATIENT
  Age: 49 Year

DRUGS (1)
  1. SINEQUAN [Suspect]
     Dosage: 325 MG, 1X/DAY
     Route: 048

REACTIONS (1)
  - SUICIDE ATTEMPT [None]
